FAERS Safety Report 5367552-9 (Version None)
Quarter: 2007Q2

REPORT INFORMATION
  Report Type: 
  Country: None (occurrence: None)
  Receive Date: 20070622
  Receipt Date: 20070102
  Transmission Date: 20071010
  Serious: No
  Sender: FDA-Public Use
  Company Number: US-ASTRAZENECA-2007UW00081

PATIENT
  Age: 51 Year
  Sex: Female
  Weight: 96.6 kg

DRUGS (2)
  1. PULMICORT [Suspect]
     Indication: ASTHMA
     Route: 055
     Dates: start: 20060101
  2. DIABETES MEDICATION [Concomitant]

REACTIONS (4)
  - ADVERSE DRUG REACTION [None]
  - BURNING SENSATION [None]
  - DYSPNOEA [None]
  - MALAISE [None]
